FAERS Safety Report 10141717 (Version 2)
Quarter: 2014Q3

REPORT INFORMATION
  Report Type: Spontaneous
  Country: GB (occurrence: GB)
  Receive Date: 20140429
  Receipt Date: 20140826
  Transmission Date: 20150326
  Serious: Yes (Other)
  Sender: FDA-Public Use
  Company Number: GB-SHIRE-GB201401527

PATIENT
  Sex: Female

DRUGS (3)
  1. MIDON [Suspect]
     Active Substance: MIDODRINE
     Indication: PRODUCT USED FOR UNKNOWN INDICATION
     Dosage: 2.5 MG, 2X/DAY:BID
     Route: 048
     Dates: start: 20131108
  2. FLUDROCORTISONE [Concomitant]
     Active Substance: FLUDROCORTISONE
     Indication: LOSS OF CONSCIOUSNESS
     Dosage: UNK, UNKNOWN
     Route: 065
     Dates: start: 20101008
  3. MIDON [Suspect]
     Active Substance: MIDODRINE
     Dosage: 2.5 MG, 1X/DAY:QD
     Route: 065

REACTIONS (1)
  - Loss of consciousness [Unknown]
